FAERS Safety Report 6627213-2 (Version None)
Quarter: 2010Q1

REPORT INFORMATION
  Report Type: 
  Country: None (occurrence: None)
  Receive Date: 20100311
  Receipt Date: 20100106
  Transmission Date: 20100710
  Serious: No
  Sender: FDA-Public Use
  Company Number: US-KINGPHARMUSA00001-K201000024

PATIENT
  Sex: Female

DRUGS (2)
  1. EMBEDA [Suspect]
     Dosage: 30 MG, UNK
  2. TAPENTADOL HYDROCHLORIDE [Concomitant]
     Dosage: UNK

REACTIONS (2)
  - DYSGEUSIA [None]
  - PAROSMIA [None]
